FAERS Safety Report 7438202-2 (Version None)
Quarter: 2011Q2

REPORT INFORMATION
  Report Type: 
  Country: None (occurrence: None)
  Receive Date: 20110426
  Receipt Date: 20110318
  Transmission Date: 20111010
  Serious: Yes (Other)
  Sender: FDA-Public Use
  Company Number: US-BAYER-201027356NA

PATIENT
  Age: 21 Year
  Sex: Female
  Weight: 47 kg

DRUGS (17)
  1. YAZ [Suspect]
     Dosage: UNK
     Dates: start: 20090201, end: 20100401
  2. OCELLA [Suspect]
     Dosage: UNK
     Dates: start: 20090201, end: 20100401
  3. BELLADONNA AND PHENOBARBITONE [Concomitant]
     Dosage: 2 TABS, TID
     Route: 048
  4. LOESTRIN FE 1/20 [Concomitant]
  5. ALEVE (CAPLET) [Concomitant]
     Dosage: UNK
     Dates: start: 20020101
  6. VITAMINS [Concomitant]
     Dosage: UNK
     Dates: start: 20060101
  7. VITAMIN C AND E [Concomitant]
     Dosage: UNK
     Dates: start: 20060101
  8. YAZ [Suspect]
     Indication: ENDOMETRIOSIS
     Dosage: UNK
     Dates: start: 20090201, end: 20090601
  9. MICROGESTIN 1.5/30 [Concomitant]
  10. VITAMIN B-12 [Concomitant]
     Dosage: 1000 MG, UNK
     Dates: start: 20080101
  11. MEPROZINE [Concomitant]
     Dosage: 1 CAPSULE, PRN
     Route: 048
  12. NEXIUM [Concomitant]
     Dosage: 40 MG, QD
     Route: 048
  13. FLUOXETINE [Concomitant]
     Dosage: 20 MG, OM
     Route: 048
  14. IRON [Concomitant]
     Dosage: 27 MG, QD
     Dates: start: 20070101, end: 20090101
  15. OCELLA [Suspect]
     Indication: ENDOMETRIOSIS
     Dosage: UNK
     Dates: start: 20090201, end: 20090601
  16. PROMETHAZINE [Concomitant]
     Dosage: 1-2 TABS, PRN
     Route: 048
  17. SEASONIQUE [Concomitant]

REACTIONS (4)
  - CARDIOVASCULAR DISORDER [None]
  - TACHYCARDIA [None]
  - CHOLECYSTECTOMY [None]
  - BILIARY DYSKINESIA [None]
